FAERS Safety Report 4505655-9 (Version None)
Quarter: 2004Q4

REPORT INFORMATION
  Report Type: 
  Country: None (occurrence: None)
  Receive Date: 20041119
  Receipt Date: 20041019
  Transmission Date: 20050328
  Serious: Yes (Life-Threatening, Hospitalization, Disabling)
  Sender: FDA-Public Use
  Company Number: US-MERCK-0410USA02879

PATIENT
  Sex: Male

DRUGS (10)
  1. VIOXX [Suspect]
     Indication: PAIN
     Route: 048
     Dates: start: 19990101, end: 20040623
  2. LOTENSIN [Concomitant]
     Route: 065
  3. ZIAC [Concomitant]
     Route: 065
  4. NUBAIN [Concomitant]
     Route: 030
     Dates: start: 20040701
  5. NUBAIN [Concomitant]
     Route: 065
  6. PROZAC [Concomitant]
     Route: 065
  7. WELLBUTRIN SR [Concomitant]
     Route: 065
  8. VALIUM [Concomitant]
     Route: 065
  9. KEPPRA [Concomitant]
     Route: 048
  10. KEPPRA [Concomitant]
     Route: 048

REACTIONS (6)
  - DEMENTIA [None]
  - DYSPHORIA [None]
  - FALL [None]
  - LOSS OF CONSCIOUSNESS [None]
  - RENAL DISORDER [None]
  - RIB FRACTURE [None]
